FAERS Safety Report 15851346 (Version 1)
Quarter: 2019Q1

REPORT INFORMATION
  Report Type: Report from Study
  Country: None (occurrence: US)
  Receive Date: 20190122
  Receipt Date: 20190122
  Transmission Date: 20190417
  Serious: Yes (Other)
  Sender: FDA-Public Use
  Company Number: US-ABBVIE-19S-163-2624090-00

PATIENT
  Age: 63 Year
  Sex: Male

DRUGS (1)
  1. LUPRON [Suspect]
     Active Substance: LEUPROLIDE ACETATE
     Indication: PRODUCT USED FOR UNKNOWN INDICATION
     Route: 050

REACTIONS (9)
  - Hypogonadism male [Unknown]
  - Renal cyst [Unknown]
  - Erectile dysfunction [Unknown]
  - Pollakiuria [Unknown]
  - Prostate cancer [Unknown]
  - Stress urinary incontinence [Unknown]
  - Urinary incontinence [Unknown]
  - Osteopenia [Unknown]
  - Prostatic specific antigen increased [Unknown]

NARRATIVE: CASE EVENT DATE: 2015
